FAERS Safety Report 23447044 (Version 1)
Quarter: 2024Q1

REPORT INFORMATION
  Report Type: Spontaneous
  Country: US (occurrence: None)
  Receive Date: 20240126
  Receipt Date: 20240126
  Transmission Date: 20240410
  Serious: Yes (Other)
  Sender: FDA-Public Use
  Company Number: None

PATIENT
  Age: 73 Year
  Sex: Male
  Weight: 93.15 kg

DRUGS (18)
  1. FINASTERIDE [Suspect]
     Active Substance: FINASTERIDE
     Indication: Prostate cancer
     Dosage: OTHER QUANTITY : 1 TABLET(S);?FREQUENCY : DAILY;?
     Route: 048
     Dates: start: 20231010, end: 20240103
  2. METFORMIN [Concomitant]
     Active Substance: METFORMIN HYDROCHLORIDE
  3. ATORVASTATIN [Concomitant]
     Active Substance: ATORVASTATIN
  4. FINESTERIDE [Concomitant]
  5. DEVICE [Concomitant]
     Active Substance: DEVICE
  6. MAGNESIUM CITRATE [Concomitant]
  7. COENZYME Q10 [Concomitant]
     Active Substance: DIETARY SUPPLEMENT\UBIDECARENONE
  8. L-Argirnine [Concomitant]
  9. TAURINE [Concomitant]
     Active Substance: TAURINE
  10. ACETYLCARNITINE [Concomitant]
     Active Substance: ACETYLCARNITINE
  11. CURCUMIN [Concomitant]
     Active Substance: CURCUMIN
  12. Vit K2 [Concomitant]
  13. VITAMIN D3 [Concomitant]
     Active Substance: CHOLECALCIFEROL
  14. FISH OIL [Concomitant]
     Active Substance: FISH OIL
  15. GLUCOSAMINE + CHONDROITIN + MSM [Concomitant]
  16. DIM [Concomitant]
  17. MELATONIN [Concomitant]
     Active Substance: MELATONIN
  18. ASPIRIN [Concomitant]
     Active Substance: ASPIRIN

REACTIONS (1)
  - Hyperaesthesia teeth [None]

NARRATIVE: CASE EVENT DATE: 20231120
